FAERS Safety Report 7075670-2 (Version None)
Quarter: 2010Q4

REPORT INFORMATION
  Report Type: 
  Country: None (occurrence: None)
  Receive Date: 20101030
  Receipt Date: 20101021
  Transmission Date: 20110411
  Serious: Yes (Disabling, Other)
  Sender: FDA-Public Use
  Company Number: US-WYE-H10349409

PATIENT
  Sex: Female

DRUGS (5)
  1. PRISTIQ [Suspect]
     Indication: DEPRESSION
     Route: 048
     Dates: start: 20090128, end: 20090201
  2. PRISTIQ [Suspect]
     Route: 048
     Dates: start: 20090201, end: 20090211
  3. PRISTIQ [Suspect]
     Route: 048
     Dates: start: 20090212, end: 20090224
  4. ABILIFY [Concomitant]
     Indication: DEPRESSION
     Dosage: 7.5 MG, FREQUENCY UNSPECIFIED
     Dates: start: 20090801
  5. REMERON [Concomitant]
     Indication: DEPRESSION
     Dosage: 30 MG, FREQUENCY UNSPECIFIED
     Dates: start: 20090401

REACTIONS (21)
  - AGGRESSION [None]
  - AGITATION [None]
  - ALTERED STATE OF CONSCIOUSNESS [None]
  - ANGER [None]
  - ANXIETY [None]
  - BIPOLAR I DISORDER [None]
  - CONDITION AGGRAVATED [None]
  - CRYING [None]
  - DEPRESSION [None]
  - HOT FLUSH [None]
  - HYPERACUSIS [None]
  - IMPAIRED WORK ABILITY [None]
  - IMPULSIVE BEHAVIOUR [None]
  - INSOMNIA [None]
  - MENTAL STATUS CHANGES [None]
  - ORAL PAIN [None]
  - OROPHARYNGEAL PAIN [None]
  - PANIC ATTACK [None]
  - PARANOIA [None]
  - PSYCHOMOTOR HYPERACTIVITY [None]
  - STRESS [None]
